FAERS Safety Report 6714975-9 (Version None)
Quarter: 2010Q2

REPORT INFORMATION
  Report Type: 
  Country: None (occurrence: None)
  Receive Date: 20100506
  Receipt Date: 20100506
  Transmission Date: 20101027
  Serious: Yes (Other)
  Sender: FDA-Public Use
  Company Number: None

PATIENT
  Sex: Female
  Weight: 6.804 kg

DRUGS (1)
  1. CONCENTRATED MOTRIN INFANTS DROPS [Suspect]
     Indication: PYREXIA
     Dosage: 1.25ML ONCE PO
     Route: 048
     Dates: start: 20100423, end: 20100423

REACTIONS (2)
  - SCREAMING [None]
  - SOMNOLENCE [None]
